FAERS Safety Report 9088992 (Version 1)
Quarter: 2013Q1

REPORT INFORMATION
  Report Type: Spontaneous
  Country: FR (occurrence: FR)
  Receive Date: 20130201
  Receipt Date: 20130201
  Transmission Date: 20140127
  Serious: Yes (Death, Other)
  Sender: FDA-Public Use
  Company Number: FR-PFIZER INC-2013037845

PATIENT
  Age: 71 Year
  Sex: Male

DRUGS (5)
  1. PRODILANTIN [Suspect]
     Indication: EPILEPSY
     Dosage: 27 ML, UNK
     Route: 042
     Dates: start: 20121020
  2. PRODILANTIN [Suspect]
     Dosage: 9 ML, UNK
     Route: 042
  3. PRODILANTIN [Suspect]
     Dosage: 10 ML, UNK
     Route: 042
     Dates: end: 20121023
  4. TAZOCILLINE [Suspect]
     Dosage: 4 G, 3X/DAY
     Route: 042
     Dates: start: 20121020, end: 20121025
  5. ROVAMYCINE [Suspect]
     Dosage: 1.5 MILLIONIU, 3X/DAY
     Route: 042
     Dates: start: 20121020, end: 20121025

REACTIONS (5)
  - Multi-organ failure [Fatal]
  - Arrhythmia [Unknown]
  - Ventricular tachycardia [Unknown]
  - Pseudomonas infection [Unknown]
  - Drug level decreased [Unknown]
